FAERS Safety Report 18520720 (Version 1)
Quarter: 2020Q4

REPORT INFORMATION
  Report Type: Spontaneous
  Country: JP (occurrence: JP)
  Receive Date: 20201119
  Receipt Date: 20201119
  Transmission Date: 20210114
  Serious: Yes (Other)
  Sender: FDA-Public Use
  Company Number: JP-HRARD-202000868

PATIENT
  Age: 34 Year
  Sex: Female

DRUGS (10)
  1. ETOPOSIDE. [Concomitant]
     Active Substance: ETOPOSIDE
     Indication: ADRENOCORTICAL CARCINOMA
     Dosage: ON DAYS 2 AND 4, AS FIRST-LINE CHEMOTHERAPY
  2. MITOTANE [Suspect]
     Active Substance: MITOTANE
     Indication: ADRENOCORTICAL CARCINOMA
     Dosage: AS FIRST LINE CHEMOTHERAPY WITH EDP
     Route: 048
  3. MITOTANE [Suspect]
     Active Substance: MITOTANE
     Indication: ADRENOCORTICAL CARCINOMA
     Dosage: AS SECOND LINE CHEMOTHERAPY WITH GC
  4. GEMCITABINE. [Suspect]
     Active Substance: GEMCITABINE
     Indication: ADRENOCORTICAL CARCINOMA
     Dosage: ON DAYS 1 AND 8 EVERY 03 WEEKS, AS SECOND LINE CHEMOTHERAPY
  5. DOXORUBICIN [Concomitant]
     Active Substance: DOXORUBICIN
     Indication: ADRENOCORTICAL CARCINOMA
     Dosage: ON DAYS 1, AS FIRST-LINE CHEMOTHERAPY
  6. CISPLATIN. [Concomitant]
     Active Substance: CISPLATIN
     Indication: ADRENOCORTICAL CARCINOMA
     Dosage: ON DAYS 3 AND 4 EVERY 04 WEEKS, AS FIRST-LINE CHEMOTHERAPY
  7. PREDNISOLONE. [Concomitant]
     Active Substance: PREDNISOLONE
     Indication: INTERSTITIAL LUNG DISEASE
  8. MITOTANE [Suspect]
     Active Substance: MITOTANE
     Indication: ADRENOCORTICAL CARCINOMA
     Dosage: AS FIRST LINE CHEMOTHERAPY WITH EDP
     Route: 048
  9. PREDNISOLONE. [Concomitant]
     Active Substance: PREDNISOLONE
     Indication: INTERSTITIAL LUNG DISEASE
     Dosage: CONTINUED OVER 08 MONTHS WITH GRADUAL DOSE REDUCTION
     Route: 048
  10. CAPECITABINE. [Suspect]
     Active Substance: CAPECITABINE
     Indication: ADRENOCORTICAL CARCINOMA
     Dosage: AS SECOND LINE CHEMOTHERAPY

REACTIONS (3)
  - Hyponatraemia [Recovered/Resolved]
  - Neutropenia [Recovered/Resolved]
  - Asthenia [Recovered/Resolved]
